FAERS Safety Report 7527039-1 (Version None)
Quarter: 2011Q2

REPORT INFORMATION
  Report Type: 
  Country: None (occurrence: None)
  Receive Date: 20110606
  Receipt Date: 20110602
  Transmission Date: 20111010
  Serious: Yes (Life-Threatening, Other)
  Sender: FDA-Public Use
  Company Number: US-ASTRAZENECA-2010SE41329

PATIENT
  Age: 18349 Day
  Sex: Male

DRUGS (8)
  1. VALIUM [Concomitant]
     Dosage: 5 MG TWO TIMES A DAY AND 10 MG AT NIGHT
  2. SEROQUEL [Suspect]
     Route: 048
  3. METFORMIN HCL [Concomitant]
  4. LANTUS [Concomitant]
  5. LORTAB [Concomitant]
  6. PRILOSEC [Suspect]
     Route: 048
  7. NEXIUM [Suspect]
     Route: 048
  8. NOVALOG INSULIN [Concomitant]

REACTIONS (19)
  - DIABETIC COMA [None]
  - DRUG DOSE OMISSION [None]
  - HEMIPLEGIA [None]
  - GRAND MAL CONVULSION [None]
  - MUSCULAR WEAKNESS [None]
  - DRUG INEFFECTIVE [None]
  - MONOPLEGIA [None]
  - OESOPHAGEAL FOOD IMPACTION [None]
  - WALKING AID USER [None]
  - BLOOD GLUCOSE DECREASED [None]
  - DYSGRAPHIA [None]
  - HYPOTENSION [None]
  - PNEUMONIA [None]
  - PRESYNCOPE [None]
  - TYPE 2 DIABETES MELLITUS [None]
  - LUNG NEOPLASM [None]
  - OESOPHAGEAL DISCOMFORT [None]
  - CEREBROVASCULAR ACCIDENT [None]
  - REGURGITATION [None]
